FAERS Safety Report 19998643 (Version 1)
Quarter: 2021Q4

REPORT INFORMATION
  Report Type: Spontaneous
  Country: US (occurrence: US)
  Receive Date: 20211027
  Receipt Date: 20211027
  Transmission Date: 20220303
  Serious: Yes (Other)
  Sender: FDA-Public Use
  Company Number: US-CELLTRION INC.-2021US014324

PATIENT

DRUGS (1)
  1. INFLIXIMAB [Suspect]
     Active Substance: INFLIXIMAB
     Indication: Crohn^s disease
     Dosage: UNK, MONTHLY
     Route: 042

REACTIONS (3)
  - Henoch-Schonlein purpura [Recovered/Resolved]
  - Ileal stenosis [Recovering/Resolving]
  - Pyrexia [Recovered/Resolved]
